FAERS Safety Report 4560855-7 (Version None)
Quarter: 2005Q1

REPORT INFORMATION
  Report Type: 
  Country: None (occurrence: None)
  Receive Date: 20050121
  Receipt Date: 20050107
  Transmission Date: 20050727
  Serious: Yes (Hospitalization)
  Sender: FDA-Public Use
  Company Number: SP00374

PATIENT
  Age: 80 Year
  Sex: Female
  Weight: 67.1324 kg

DRUGS (9)
  1. COLAZAL [Suspect]
     Indication: COLITIS ULCERATIVE
     Dosage: 2.25G/TID ORAL
     Route: 048
     Dates: start: 20040908, end: 20041101
  2. ALLOPURINOL [Suspect]
     Indication: COLITIS ULCERATIVE
     Dosage: 300 MG/QD ORAL
     Route: 048
  3. ASACOL [Concomitant]
  4. FOLIC ACID TAB [Concomitant]
  5. ATENOLOL [Concomitant]
  6. ZESTRIL [Concomitant]
  7. NORVASC [Concomitant]
  8. HYDROCHLOROTHIAZIDE (TABLETS) [Concomitant]
  9. ASPIRIN [Concomitant]

REACTIONS (6)
  - BLOOD PRESSURE INCREASED [None]
  - IDIOPATHIC THROMBOCYTOPENIC PURPURA [None]
  - LEUKOCYTOSIS [None]
  - NEUTROPHIL COUNT ABNORMAL [None]
  - NORMOCHROMIC NORMOCYTIC ANAEMIA [None]
  - TREATMENT NONCOMPLIANCE [None]
